FAERS Safety Report 6502180-0 (Version None)
Quarter: 2009Q4

REPORT INFORMATION
  Report Type: 
  Country: None (occurrence: None)
  Receive Date: 20091216
  Receipt Date: 20090924
  Transmission Date: 20100525
  Serious: No
  Sender: FDA-Public Use
  Company Number: US-ABBOTT-09P-163-0599575-00

PATIENT
  Sex: Female

DRUGS (2)
  1. TRILIPIX [Suspect]
     Indication: BLOOD TRIGLYCERIDES INCREASED
     Route: 048
     Dates: end: 20090915
  2. TRILIPIX [Suspect]
     Route: 048
     Dates: start: 20090917, end: 20090923

REACTIONS (2)
  - HYPERCHLORHYDRIA [None]
  - MYALGIA [None]
